FAERS Safety Report 22069303 (Version 2)
Quarter: 2023Q4

REPORT INFORMATION
  Report Type: Spontaneous
  Country: TR (occurrence: TR)
  Receive Date: 20230307
  Receipt Date: 20231030
  Transmission Date: 20240110
  Serious: Yes (Other)
  Sender: FDA-Public Use
  Company Number: TR-002147023-NVSC2023TR050034

PATIENT
  Age: 73 Year
  Sex: Female

DRUGS (1)
  1. EXELON [Suspect]
     Active Substance: RIVASTIGMINE TARTRATE
     Indication: Dementia
     Dosage: UNK, QD (FOR 15 YEARS)
     Route: 065

REACTIONS (4)
  - Epilepsy [Unknown]
  - Malaise [Unknown]
  - Product administered at inappropriate site [Unknown]
  - Product supply issue [Unknown]
